FAERS Safety Report 6511685-8 (Version None)
Quarter: 2009Q4

REPORT INFORMATION
  Report Type: 
  Country: None (occurrence: None)
  Receive Date: 20091222
  Receipt Date: 20090511
  Transmission Date: 20100525
  Serious: No
  Sender: FDA-Public Use
  Company Number: US-ASTRAZENECA-2009UW12027

PATIENT
  Age: 65 Year
  Sex: Female
  Weight: 74.8 kg

DRUGS (6)
  1. CRESTOR [Suspect]
     Route: 048
     Dates: start: 20090101
  2. NEXIUM [Concomitant]
     Indication: DYSPEPSIA
  3. THYROID MEDICATION [Concomitant]
     Indication: THYROID DISORDER
  4. CALCIUM [Concomitant]
  5. FISH OIL [Concomitant]
  6. BLOOD PRESSURE MEDICATION [Concomitant]
     Indication: HYPERTENSION

REACTIONS (3)
  - DRUG ADMINISTRATION ERROR [None]
  - DYSPEPSIA [None]
  - SLEEP DISORDER [None]
